FAERS Safety Report 17592850 (Version 1)
Quarter: 2020Q1

REPORT INFORMATION
  Report Type: Report from Study
  Country: US (occurrence: US)
  Receive Date: 20200327
  Receipt Date: 20200327
  Transmission Date: 20200409
  Serious: Yes (Hospitalization)
  Sender: FDA-Public Use
  Company Number: US-GILEAD-2020-0456577

PATIENT
  Age: 59 Year
  Sex: Female

DRUGS (3)
  1. AMBRISENTAN [Suspect]
     Active Substance: AMBRISENTAN
     Indication: PRODUCT USED FOR UNKNOWN INDICATION
     Dosage: 5 MG, QD
     Route: 048
     Dates: start: 20170117
  2. ADCIRCA [Concomitant]
     Active Substance: TADALAFIL
  3. OXYGEN. [Concomitant]
     Active Substance: OXYGEN

REACTIONS (4)
  - Weight increased [Not Recovered/Not Resolved]
  - Swelling [Unknown]
  - Gait disturbance [Unknown]
  - Dyspnoea [Unknown]

NARRATIVE: CASE EVENT DATE: 20200226
